FAERS Safety Report 23160420 (Version 6)
Quarter: 2024Q1

REPORT INFORMATION
  Report Type: Spontaneous
  Country: US (occurrence: US)
  Receive Date: 20231108
  Receipt Date: 20240220
  Transmission Date: 20240409
  Serious: No
  Sender: FDA-Public Use
  Company Number: US-PFIZER INC-202300347251

PATIENT
  Age: 4 Year
  Sex: Male

DRUGS (4)
  1. GENOTROPIN [Suspect]
     Active Substance: SOMATROPIN
     Indication: Small for dates baby
     Dosage: 0.5 MG (6 DAYS PER WEEK)
  2. ZYRTEC-D ALLERGY AND CONGESTION [Concomitant]
     Active Substance: CETIRIZINE HYDROCHLORIDE\PSEUDOEPHEDRINE HYDROCHLORIDE
     Dosage: UNK
  3. ALBUTEROL SULFATE [Concomitant]
     Active Substance: ALBUTEROL SULFATE
     Dosage: UNK, AS NEEDED
  4. FLUTICASONE [Concomitant]
     Active Substance: FLUTICASONE
     Dosage: UNK

REACTIONS (4)
  - Wrong technique in device usage process [Unknown]
  - Drug dose omission by device [Unknown]
  - Device breakage [Unknown]
  - Device mechanical issue [Unknown]
